FAERS Safety Report 8362059-9 (Version None)
Quarter: 2012Q2

REPORT INFORMATION
  Report Type: 
  Country: None (occurrence: None)
  Receive Date: 20120515
  Receipt Date: 20120507
  Transmission Date: 20120825
  Serious: Yes (Other)
  Sender: FDA-Public Use
  Company Number: BR-ROCHE-1028436

PATIENT
  Sex: Female

DRUGS (7)
  1. COMBIVENT [Concomitant]
  2. XOLAIR [Suspect]
     Indication: ASTHMA
  3. BUDESONIDE [Concomitant]
  4. BUDESONIDE [Concomitant]
     Dosage: 12/400 MCG
  5. SINGULAIR [Concomitant]
  6. LOSARTAN POTASSIUM [Concomitant]
  7. PRILOSEC [Concomitant]

REACTIONS (8)
  - RHEUMATOID ARTHRITIS [None]
  - INFLUENZA [None]
  - MALAISE [None]
  - FATIGUE [None]
  - ARTHRITIS [None]
  - FEAR [None]
  - ASTHMATIC CRISIS [None]
  - SECRETION DISCHARGE [None]
